FAERS Safety Report 7618914-8 (Version None)
Quarter: 2011Q3

REPORT INFORMATION
  Report Type: 
  Country: None (occurrence: None)
  Receive Date: 20110718
  Receipt Date: 20110628
  Transmission Date: 20111222
  Serious: No
  Sender: FDA-Public Use
  Company Number: US-ROXANE LABORATORIES, INC.-2011-RO-00731RO

PATIENT
  Sex: Female

DRUGS (1)
  1. ROXICET [Suspect]
     Route: 048

REACTIONS (1)
  - DRUG INEFFECTIVE [None]
